FAERS Safety Report 22522239 (Version 1)
Quarter: 2023Q2

REPORT INFORMATION
  Report Type: Spontaneous
  Country: KR (occurrence: KR)
  Receive Date: 20230605
  Receipt Date: 20230605
  Transmission Date: 20230721
  Serious: Yes (Hospitalization)
  Sender: FDA-Public Use
  Company Number: KR-ORGANON-O2305KOR003246

PATIENT
  Age: 74 Year
  Sex: Female
  Weight: 60 kg

DRUGS (4)
  1. COZAAR [Suspect]
     Active Substance: LOSARTAN POTASSIUM
     Indication: Essential hypertension
     Dosage: 50 MILLIGRAM, 1 DAY; FORMULATION: CAPSULE
     Route: 048
     Dates: start: 20180809
  2. ASPIRIN [Concomitant]
     Active Substance: ASPIRIN
     Indication: Essential hypertension
     Dosage: 100 MILLIGRAM, 1 DAY
     Route: 048
     Dates: start: 20180508, end: 20200319
  3. CLOPIDOGREL BISULFATE [Concomitant]
     Active Substance: CLOPIDOGREL BISULFATE
     Indication: Essential hypertension
     Dosage: 75 MILLIGRAM, 1 DAY
     Route: 048
     Dates: start: 20180928
  4. TORSEMIDE [Concomitant]
     Active Substance: TORSEMIDE
     Indication: Essential hypertension
     Dosage: 5 MILLIGRAM, 1 DAY
     Route: 048
     Dates: start: 20190121

REACTIONS (1)
  - Cholelithiasis [Recovered/Resolved]

NARRATIVE: CASE EVENT DATE: 20191028
